FAERS Safety Report 17097864 (Version 2)
Quarter: 2019Q4

REPORT INFORMATION
  Report Type: Report from Study
  Country: JP (occurrence: JP)
  Receive Date: 20191202
  Receipt Date: 20191210
  Transmission Date: 20200122
  Serious: Yes (Hospitalization)
  Sender: FDA-Public Use
  Company Number: JP-KYOWAKIRIN-2019AKK018745

PATIENT

DRUGS (8)
  1. PREDONINE [Concomitant]
     Active Substance: PREDNISOLONE
     Indication: TROPICAL SPASTIC PARESIS
     Dosage: 20 MG, QOD
     Route: 048
     Dates: start: 20170831
  2. VOALLA [Concomitant]
     Indication: RASH
     Dosage: ADEQUATE DOSE, PRN
     Route: 061
     Dates: start: 20191019
  3. MOGAMULIZUMAB [Suspect]
     Active Substance: MOGAMULIZUMAB
     Indication: TROPICAL SPASTIC PARESIS
     Dosage: 0.3 MG/KG
     Route: 041
     Dates: start: 20180710
  4. SELENICA-R [Concomitant]
     Active Substance: VALPROATE SODIUM
     Indication: EPILEPSY
     Dosage: 600 MG, QD
     Route: 048
     Dates: start: 20180216
  5. FAMOTIDINE. [Concomitant]
     Active Substance: FAMOTIDINE
     Indication: GASTRITIS PROPHYLAXIS
     Dosage: 10 MG, BID
     Route: 048
  6. RISEDRONATE NA [Concomitant]
     Active Substance: RISEDRONATE SODIUM
     Indication: OSTEOPOROSIS PROPHYLAXIS
     Dosage: 17.5 MG, 1X/WEEK
     Route: 048
     Dates: start: 20181231
  7. OLOPATADINE HYDROCHLORIDE. [Concomitant]
     Active Substance: OLOPATADINE HYDROCHLORIDE
     Indication: RASH
     Dosage: 5 MG, BID
     Route: 048
     Dates: start: 20190906
  8. FEBURIC [Concomitant]
     Active Substance: FEBUXOSTAT
     Indication: HYPERURICAEMIA
     Dosage: 10 MG, QD
     Route: 048

REACTIONS (1)
  - Tumour invasion [Not Recovered/Not Resolved]

NARRATIVE: CASE EVENT DATE: 20191126
